FAERS Safety Report 9519231 (Version 1)
Quarter: 2013Q3

REPORT INFORMATION
  Report Type: Spontaneous
  Country: US (occurrence: None)
  Receive Date: 20130911
  Receipt Date: 20130911
  Transmission Date: 20140515
  Serious: Yes (Life-Threatening, Other)
  Sender: FDA-Public Use
  Company Number: None

PATIENT
  Age: 40 Year
  Sex: Female

DRUGS (12)
  1. FANAPT [Suspect]
     Indication: ANXIETY
     Dosage: 6 MG HALF PILL BEDTIME BY MOUTH
     Route: 048
     Dates: start: 20130822, end: 20130906
  2. FANAPT [Suspect]
     Indication: PAIN
     Dosage: 6 MG HALF PILL BEDTIME BY MOUTH
     Route: 048
     Dates: start: 20130822, end: 20130906
  3. HALOPERIONE [Concomitant]
  4. LORAZEPAM [Concomitant]
  5. METFORMIN [Concomitant]
  6. GLIPIZIDE [Concomitant]
  7. NEXIUM [Concomitant]
  8. LISINOPRIL [Concomitant]
  9. VENTOLIN INHALER [Concomitant]
  10. QVAR INHALER [Concomitant]
  11. CRESTOR [Concomitant]
  12. GENERIC CLARITIN [Concomitant]

REACTIONS (2)
  - Amnesia [None]
  - Adverse drug reaction [None]
